FAERS Safety Report 9704012 (Version 3)
Quarter: 2015Q4

REPORT INFORMATION
  Report Type: Spontaneous
  Country: US (occurrence: US)
  Receive Date: 20131122
  Receipt Date: 20151228
  Transmission Date: 20160305
  Serious: Yes (Hospitalization, Other)
  Sender: FDA-Public Use
  Company Number: US-BAYER-2013-141843

PATIENT
  Age: 33 Year
  Sex: Female
  Weight: 72.56 kg

DRUGS (6)
  1. YAZ [Suspect]
     Active Substance: DROSPIRENONE\ETHINYL ESTRADIOL
  2. ZOVIRAX [Concomitant]
     Active Substance: ACYCLOVIR
  3. YASMIN [Suspect]
     Active Substance: DROSPIRENONE\ETHINYL ESTRADIOL
     Dosage: UNK
  4. OCELLA [Suspect]
     Active Substance: DROSPIRENONE\ETHINYL ESTRADIOL
     Dosage: UNK
  5. GIANVI [Suspect]
     Active Substance: DROSPIRENONE\ETHINYL ESTRADIOL
  6. LIDOCAINE/PRILOCAINE [LIDOCAINE,PRILOCAINE] [Concomitant]

REACTIONS (6)
  - Pain [None]
  - Cerebrovascular accident [None]
  - Injury [None]
  - Cerebral infarction [None]
  - Cerebral artery embolism [None]
  - Emotional distress [None]

NARRATIVE: CASE EVENT DATE: 200906
